FAERS Safety Report 6276175-9 (Version None)
Quarter: 2009Q3

REPORT INFORMATION
  Report Type: 
  Country: None (occurrence: None)
  Receive Date: 20090717
  Receipt Date: 20090717
  Transmission Date: 20100115
  Serious: Yes (Disabling)
  Sender: FDA-Public Use
  Company Number: None

PATIENT
  Age: 58 Year
  Sex: Male
  Weight: 72.5755 kg

DRUGS (1)
  1. ZICAM MATRIX LAB [Suspect]
     Indication: NASOPHARYNGITIS
     Dosage: NASAL SWABS EVERY 4 HRS. MID FEB. - MID MARCH - 08
     Dates: start: 20080201, end: 20080301

REACTIONS (2)
  - ANOSMIA [None]
  - HYPOGEUSIA [None]
